FAERS Safety Report 5055441-9 (Version None)
Quarter: 2006Q3

REPORT INFORMATION
  Report Type: 
  Country: None (occurrence: None)
  Receive Date: 20060714
  Receipt Date: 20060626
  Transmission Date: 20061208
  Serious: Yes (Hospitalization)
  Sender: FDA-Public Use
  Company Number: FR200606005645

PATIENT
  Age: 9 Year
  Sex: Female

DRUGS (1)
  1. UMATROPE (SOMATROPIN) CARTRIDGE [Suspect]
     Indication: GROWTH RETARDATION
     Dosage: SUBCUTANEOUS
     Route: 058
     Dates: start: 20060101, end: 20060501

REACTIONS (4)
  - BRAIN OEDEMA [None]
  - HEADACHE [None]
  - INTRACRANIAL PRESSURE INCREASED [None]
  - PAPILLOEDEMA [None]
